FAERS Safety Report 10744219 (Version 2)
Quarter: 2015Q1

REPORT INFORMATION
  Report Type: Spontaneous
  Country: US (occurrence: None)
  Receive Date: 20150126
  Receipt Date: 20150203
  Transmission Date: 20150721
  Serious: Yes (Hospitalization)
  Sender: FDA-Public Use
  Company Number: US-H14001-15-00116

PATIENT
  Age: 23 Year
  Sex: Female

DRUGS (3)
  1. NAPROXEN. [Suspect]
     Active Substance: NAPROXEN
     Indication: BACK PAIN
     Route: 048
  2. METAXALONE (METAXALONE) [Suspect]
     Active Substance: METAXALONE
     Indication: BACK PAIN
     Route: 048
  3. TRAMADOL (TRAMADOL) [Suspect]
     Active Substance: TRAMADOL
     Indication: BACK PAIN
     Route: 048

REACTIONS (10)
  - Respiratory depression [None]
  - Intentional overdose [None]
  - Miosis [None]
  - Suicidal behaviour [None]
  - Blood pressure increased [None]
  - Somnolence [None]
  - Autonomic nervous system imbalance [None]
  - Depressed level of consciousness [None]
  - Serotonin syndrome [None]
  - Seizure [None]
